FAERS Safety Report 4579495-9 (Version None)
Quarter: 2005Q1

REPORT INFORMATION
  Report Type: 
  Country: None (occurrence: None)
  Receive Date: 20050209
  Receipt Date: 20050131
  Transmission Date: 20050727
  Serious: Yes (Other)
  Sender: FDA-Public Use
  Company Number: 2005022922

PATIENT
  Age: 66 Year
  Sex: Male

DRUGS (3)
  1. TAHOR(ATORVASTATIN) [Suspect]
     Indication: HYPERCHOLESTEROLAEMIA
     Dosage: 40 MG (1 IN 1 D)
  2. PIOGLITAZONE HCL [Concomitant]
  3. ENOXAPARIN SODIUM [Concomitant]

REACTIONS (3)
  - DISEASE RECURRENCE [None]
  - PHLEBITIS [None]
  - TENDONITIS [None]
